FAERS Safety Report 19764264 (Version 3)
Quarter: 2022Q3

REPORT INFORMATION
  Report Type: Spontaneous
  Country: FR (occurrence: FR)
  Receive Date: 20210831
  Receipt Date: 20220720
  Transmission Date: 20221026
  Serious: Yes (Hospitalization, Other)
  Sender: FDA-Public Use
  Company Number: FR-AFSSAPS-SE20210857

PATIENT
  Age: 62 Year
  Sex: Female
  Weight: 56 kg

DRUGS (2)
  1. PAROXETINE [Suspect]
     Active Substance: PAROXETINE
     Indication: Depression
     Dosage: 20 MILLIGRAM, ONCE A DAY
     Route: 048
     Dates: start: 20210325
  2. MODERNA COVID-19 VACCINE [Suspect]
     Active Substance: ELASOMERAN
     Indication: COVID-19 immunisation
     Dosage: 1 DOSAGE FORM (1 TOTAL)
     Route: 030
     Dates: start: 20210310, end: 20210310

REACTIONS (1)
  - Cold type haemolytic anaemia [Not Recovered/Not Resolved]

NARRATIVE: CASE EVENT DATE: 20210412
